FAERS Safety Report 6096483-4 (Version None)
Quarter: 2009Q1

REPORT INFORMATION
  Report Type: 
  Country: None (occurrence: None)
  Receive Date: 20090225
  Receipt Date: 20090225
  Transmission Date: 20090719
  Serious: Yes (Other)
  Sender: FDA-Public Use
  Company Number: None

PATIENT
  Sex: Female
  Weight: 65.7716 kg

DRUGS (5)
  1. CYMBALTA [Suspect]
     Indication: DEPRESSION
     Dosage: 60 MG ONCE A DAY
  2. SEPTRA [Suspect]
     Indication: SKIN LACERATION
     Dosage: 800-160 TAB 1 EVERY 12 HRS
  3. ZOLPIDEM [Concomitant]
  4. HYDROCHLORIDE [Concomitant]
  5. TRAMADOL HCL [Concomitant]

REACTIONS (9)
  - FATIGUE [None]
  - FEELING COLD [None]
  - GASTRIC DISORDER [None]
  - HOT FLUSH [None]
  - NAUSEA [None]
  - PAIN [None]
  - PRURITUS [None]
  - RASH GENERALISED [None]
  - VOMITING [None]
